FAERS Safety Report 9993420 (Version 1)
Quarter: 2014Q1

REPORT INFORMATION
  Report Type: Spontaneous
  Country: SV (occurrence: SV)
  Receive Date: 20140310
  Receipt Date: 20140310
  Transmission Date: 20141002
  Serious: Yes (Other)
  Sender: FDA-Public Use
  Company Number: SV-B.I. PHARMACEUTICALS,INC./RIDGEFIELD-2014-BI-10509MX

PATIENT
  Age: 85 Year
  Sex: Female

DRUGS (1)
  1. MICARDIS DUO [Suspect]
     Indication: PRODUCT USED FOR UNKNOWN INDICATION
     Dosage: DOSE PER APPLICATION: 80 / 5
     Route: 065

REACTIONS (4)
  - Atrioventricular block complete [Unknown]
  - Hypernatraemia [Unknown]
  - Hyponatraemia [Unknown]
  - Hyperkalaemia [Unknown]
